FAERS Safety Report 13803409 (Version 1)
Quarter: 2017Q3

REPORT INFORMATION
  Report Type: Spontaneous
  Country: US (occurrence: US)
  Receive Date: 20170728
  Receipt Date: 20170728
  Transmission Date: 20171127
  Serious: Yes (Other)
  Sender: FDA-Public Use
  Company Number: None

PATIENT
  Age: 56 Year
  Sex: Female
  Weight: 99 kg

DRUGS (5)
  1. DESVENLAFAXINE SUC [Suspect]
     Active Substance: DESVENLAFAXINE SUCCINATE
     Indication: DEPRESSION
     Dosage: ?          QUANTITY:90 TABLET(S);OTHER FREQUENCY:EVERY DAY;?
     Route: 048
     Dates: start: 20170623, end: 20170726
  2. C VITAMIN [Concomitant]
  3. METFORMIN [Concomitant]
     Active Substance: METFORMIN HYDROCHLORIDE
  4. B VITAMINS [Concomitant]
     Active Substance: CYANOCOBALAMIN\DEXPANTHENOL\NIACINAMIDE\PYRIDOXINE HYDROCHLORIDE\RIBOFLAVIN 5^-PHOSPHATE SODIUM\THIAMINE HYDROCHLORIDE\VITAMIN B COMPLEX
  5. SYNTHROID [Concomitant]
     Active Substance: LEVOTHYROXINE SODIUM

REACTIONS (7)
  - Product substitution issue [None]
  - Anxiety [None]
  - Insomnia [None]
  - Impaired work ability [None]
  - Fatigue [None]
  - Headache [None]
  - Tension [None]

NARRATIVE: CASE EVENT DATE: 20170715
